FAERS Safety Report 18767890 (Version 1)
Quarter: 2021Q1

REPORT INFORMATION
  Report Type: Other
  Country: DE (occurrence: DE)
  Receive Date: 20210121
  Receipt Date: 20210121
  Transmission Date: 20210419
  Serious: No
  Sender: FDA-Public Use
  Company Number: DE-LUPIN PHARMACEUTICALS INC.-2021-00223

PATIENT
  Age: 55 Year
  Sex: Female
  Weight: 39 kg

DRUGS (1)
  1. QUETIAPINE. [Suspect]
     Active Substance: QUETIAPINE
     Indication: INITIAL INSOMNIA
     Dosage: 2 DOSAGE FORM, QD (0?0?2)
     Route: 048
     Dates: start: 20201210, end: 20210101

REACTIONS (1)
  - Formication [Not Recovered/Not Resolved]

NARRATIVE: CASE EVENT DATE: 20201210
